FAERS Safety Report 16342151 (Version 2)
Quarter: 2020Q3

REPORT INFORMATION
  Report Type: Spontaneous
  Country: CN (occurrence: CN)
  Receive Date: 20190522
  Receipt Date: 20200723
  Transmission Date: 20201102
  Serious: Yes (Death, Other)
  Sender: FDA-Public Use
  Company Number: CN-PFIZER INC-2019212580

PATIENT
  Age: 77 Year
  Sex: Male
  Weight: 60 kg

DRUGS (21)
  1. TIGECYCLINE. [Suspect]
     Active Substance: TIGECYCLINE
     Indication: CHRONIC OBSTRUCTIVE PULMONARY DISEASE
     Dosage: 50 MG, 2X/DAY (EVERY 12HOURS)
     Route: 042
     Dates: start: 20190327
  2. ALPROSTADIL. [Concomitant]
     Active Substance: ALPROSTADIL
     Dosage: UNK
  3. CLOPIDOGREL [Concomitant]
     Active Substance: CLOPIDOGREL BISULFATE
     Dosage: UNK
  4. AMINOPHYLLINE. [Concomitant]
     Active Substance: AMINOPHYLLINE
     Dosage: UNK
  5. MOXIFLOXACIN. [Concomitant]
     Active Substance: MOXIFLOXACIN
     Indication: ACINETOBACTER INFECTION
  6. TRIMETAZIDINE [Concomitant]
     Active Substance: TRIMETAZIDINE
     Dosage: UNK
  7. MOXIFLOXACIN. [Concomitant]
     Active Substance: MOXIFLOXACIN
     Indication: PNEUMONIA
     Dosage: 400 MG, DAILY
     Route: 042
  8. CARNITINE [Concomitant]
     Active Substance: CARNITINE
     Dosage: UNK
  9. INSULIN [Concomitant]
     Active Substance: INSULIN NOS
     Dosage: UNK
  10. FERROUS SULFATE. [Concomitant]
     Active Substance: FERROUS SULFATE
     Dosage: UNK
  11. ISOSORBIDE MONONITRATE. [Concomitant]
     Active Substance: ISOSORBIDE MONONITRATE
     Dosage: UNK
  12. MINOCYCLINE [Concomitant]
     Active Substance: MINOCYCLINE HYDROCHLORIDE
     Dosage: 0.1 G, 2X/DAY
     Route: 048
  13. AMBROXOL [Concomitant]
     Active Substance: AMBROXOL
     Dosage: UNK
  14. LEVAMLODIPINE [Concomitant]
     Active Substance: LEVAMLODIPINE
     Dosage: UNK
  15. MEROPENEM. [Concomitant]
     Active Substance: MEROPENEM
     Dosage: 500 MG, 3X/DAY
     Route: 041
     Dates: end: 20180320
  16. MINOCYCLINE [Concomitant]
     Active Substance: MINOCYCLINE HYDROCHLORIDE
     Dosage: 0.1 G, 2X/DAY
     Route: 041
  17. TIGECYCLINE. [Suspect]
     Active Substance: TIGECYCLINE
     Indication: ACINETOBACTER INFECTION
     Dosage: LOADING DOSE OF 100 MG
     Route: 042
     Dates: start: 20180320
  18. MEROPENEM. [Concomitant]
     Active Substance: MEROPENEM
     Dosage: 500 MG, 4X/DAY
     Route: 042
  19. AMIKACIN. [Concomitant]
     Active Substance: AMIKACIN
     Dosage: 200 MG, 2X/DAY
     Route: 041
     Dates: end: 20180327
  20. MEROPENEM. [Concomitant]
     Active Substance: MEROPENEM
     Dosage: 0.5 G
     Route: 041
     Dates: end: 20180328
  21. FOLIC ACID. [Concomitant]
     Active Substance: FOLIC ACID
     Dosage: UNK

REACTIONS (5)
  - Disorganised speech [Recovering/Resolving]
  - Delirium [Recovered/Resolved]
  - Unresponsive to stimuli [Recovered/Resolved]
  - Hallucination [Recovering/Resolving]
  - Staring [Recovered/Resolved]
